FAERS Safety Report 7650005-2 (Version None)
Quarter: 2011Q3

REPORT INFORMATION
  Report Type: 
  Country: None (occurrence: None)
  Receive Date: 20110719
  Receipt Date: 20100702
  Transmission Date: 20111222
  Serious: Yes (Other)
  Sender: FDA-Public Use
  Company Number: 163-50794-10070220

PATIENT

DRUGS (6)
  1. DECITABINE [Suspect]
     Indication: ERYTHROLEUKAEMIA
  2. TRETINOIN [Suspect]
     Indication: ERYTHROLEUKAEMIA
  3. MIDOSTAURINE (MIDOSTAURIN) (UNKNOWN) [Suspect]
     Indication: ERYTHROLEUKAEMIA
  4. VALPROIC ACID [Suspect]
     Indication: ERYTHROLEUKAEMIA
  5. VIDAZA [Suspect]
     Indication: ERYTHROLEUKAEMIA
  6. TIPIFARNIB (TIPIFARNIB) (UNKNOWN) [Suspect]
     Indication: ERYTHROLEUKAEMIA

REACTIONS (3)
  - THROMBOCYTOPENIA [None]
  - FATIGUE [None]
  - SEPSIS [None]
